FAERS Safety Report 10193043 (Version 1)
Quarter: 2014Q2

REPORT INFORMATION
  Report Type: Spontaneous
  Country: US (occurrence: US)
  Receive Date: 20140524
  Receipt Date: 20140524
  Transmission Date: 20141212
  Serious: No
  Sender: FDA-Public Use
  Company Number: US-009507513-1405USA011867

PATIENT
  Sex: Male

DRUGS (1)
  1. GRASTEK [Suspect]
     Indication: HYPERSENSITIVITY
     Dosage: DOSE/FREQUENCY-2800 BAU,ONCE DAILY
     Route: 060

REACTIONS (1)
  - Pruritus generalised [Recovered/Resolved]
